FAERS Safety Report 5737312-5 (Version None)
Quarter: 2008Q2

REPORT INFORMATION
  Report Type: 
  Country: None (occurrence: None)
  Receive Date: 20080512
  Receipt Date: 20080512
  Transmission Date: 20081010
  Serious: Yes (Death)
  Sender: FDA-Public Use
  Company Number: None

PATIENT
  Age: 87 Year
  Sex: Female
  Weight: 81.6475 kg

DRUGS (1)
  1. DIGITEK [Suspect]

REACTIONS (9)
  - ANOREXIA [None]
  - DIZZINESS [None]
  - FALL [None]
  - NAUSEA [None]
  - PHARMACEUTICAL PRODUCT COMPLAINT [None]
  - SUDDEN DEATH [None]
  - UPPER LIMB FRACTURE [None]
  - WEIGHT DECREASED [None]
  - WRIST FRACTURE [None]
